FAERS Safety Report 7610265-0 (Version None)
Quarter: 2011Q3

REPORT INFORMATION
  Report Type: 
  Country: None (occurrence: None)
  Receive Date: 20110715
  Receipt Date: 20110705
  Transmission Date: 20111222
  Serious: Yes (Hospitalization)
  Sender: FDA-Public Use
  Company Number: FR-AMGEN-FRASP2011034677

PATIENT
  Age: 83 Year
  Sex: Female

DRUGS (4)
  1. ACETAMINOPHEN AND CODEINE PHOSPHATE [Concomitant]
     Dosage: UNK
  2. METHOTREXATE SODIUM [Concomitant]
     Dosage: UNK
  3. PROTELOS [Concomitant]
     Dosage: UNK
  4. ENBREL [Suspect]
     Indication: RHEUMATOID ARTHRITIS
     Dosage: 50MG, UNK
     Dates: start: 20101209

REACTIONS (1)
  - CEREBROVASCULAR ACCIDENT [None]
